FAERS Safety Report 9769903 (Version 1)
Quarter: 2013Q4

REPORT INFORMATION
  Report Type: Spontaneous
  Country: US (occurrence: US)
  Receive Date: 20131218
  Receipt Date: 20131218
  Transmission Date: 20140711
  Serious: No
  Sender: FDA-Public Use
  Company Number: US-009507513-1312USA003646

PATIENT
  Sex: 0

DRUGS (2)
  1. AZASITE [Suspect]
     Indication: MEIBOMIAN GLAND DYSFUNCTION
     Dosage: UNK
     Route: 047
  2. AZASITE [Suspect]
     Indication: CHALAZION

REACTIONS (2)
  - Chalazion [Unknown]
  - Drug dose omission [Unknown]
